FAERS Safety Report 4939688-5 (Version None)
Quarter: 2006Q1

REPORT INFORMATION
  Report Type: 
  Country: None (occurrence: None)
  Receive Date: 20060307
  Receipt Date: 20060222
  Transmission Date: 20060701
  Serious: Yes (Hospitalization, Other)
  Sender: FDA-Public Use
  Company Number: 2006026563

PATIENT
  Age: 58 Year
  Sex: Female
  Weight: 54.5 kg

DRUGS (3)
  1. ZYVOX [Suspect]
     Indication: ILL-DEFINED DISORDER
     Dates: start: 20060111
  2. MIRTAZAPINE [Suspect]
     Indication: ILL-DEFINED DISORDER
     Dates: end: 20060219
  3. VENLAFAXINE HCL [Concomitant]

REACTIONS (3)
  - BLOOD PRESSURE ABNORMAL [None]
  - DRUG INTERACTION [None]
  - HEART RATE ABNORMAL [None]
